FAERS Safety Report 16580918 (Version 1)
Quarter: 2019Q3

REPORT INFORMATION
  Report Type: Spontaneous
  Country: US (occurrence: US)
  Receive Date: 20190716
  Receipt Date: 20190716
  Transmission Date: 20191004
  Serious: No
  Sender: FDA-Public Use
  Company Number: US-KVK-TECH, INC-2070885

PATIENT

DRUGS (2)
  1. CYCLOBENZAPRINE HYDROCHLORIDE. [Suspect]
     Active Substance: CYCLOBENZAPRINE HYDROCHLORIDE
     Indication: MUSCLE SPASMS
  2. NORCO [Concomitant]
     Active Substance: ACETAMINOPHEN\HYDROCODONE BITARTRATE
     Route: 065

REACTIONS (8)
  - Paraesthesia [Unknown]
  - Vision blurred [Unknown]
  - Pain [Unknown]
  - Feeling abnormal [Unknown]
  - Adverse event [Unknown]
  - Drug interaction [Unknown]
  - Spinal pain [Unknown]
  - Irritability [Unknown]
